FAERS Safety Report 8288718-4 (Version None)
Quarter: 2012Q2

REPORT INFORMATION
  Report Type: 
  Country: None (occurrence: None)
  Receive Date: 20120417
  Receipt Date: 20120410
  Transmission Date: 20120825
  Serious: Yes (Hospitalization)
  Sender: FDA-Public Use
  Company Number: US-BIOGENIDEC-2011BI043634

PATIENT
  Age: 48 Year
  Sex: Female

DRUGS (11)
  1. ZANAFLEX [Concomitant]
     Route: 048
  2. TYSABRI [Suspect]
     Indication: RELAPSING-REMITTING MULTIPLE SCLEROSIS
     Route: 042
     Dates: start: 20091210
  3. ZYRTEC [Concomitant]
     Route: 048
  4. RYZOLT [Concomitant]
     Route: 048
     Dates: end: 20110725
  5. HEMOCYTE [Concomitant]
     Route: 048
     Dates: end: 20110725
  6. ZIAC [Concomitant]
     Route: 048
     Dates: end: 20110725
  7. ZIAC [Concomitant]
     Route: 048
     Dates: end: 20110725
  8. EXTRA STRENGTH TYLENOL [Concomitant]
     Route: 048
  9. K-PHOS ORIGINAL [Concomitant]
     Route: 048
     Dates: end: 20110725
  10. TRAMADOL HCL [Concomitant]
     Route: 048
     Dates: start: 20101230
  11. HEMOCYTE [Concomitant]
     Route: 048
     Dates: end: 20110725

REACTIONS (1)
  - MULTIPLE SCLEROSIS RELAPSE [None]
